FAERS Safety Report 11925771 (Version 1)
Quarter: 2016Q1

REPORT INFORMATION
  Report Type: Report from Study
  Country: US (occurrence: US)
  Receive Date: 20160118
  Receipt Date: 20160118
  Transmission Date: 20160526
  Serious: Yes (Hospitalization, Other)
  Sender: FDA-Public Use
  Company Number: US-AMGEN-USASL2016003419

PATIENT
  Age: 38 Year
  Sex: Male

DRUGS (1)
  1. SENSIPAR [Suspect]
     Active Substance: CINACALCET HYDROCHLORIDE
     Indication: HYPERPARATHYROIDISM SECONDARY
     Dosage: 90 MG, QD
     Route: 048

REACTIONS (2)
  - Pulmonary oedema [Unknown]
  - Ascites [Unknown]
